FAERS Safety Report 5419566-8 (Version None)
Quarter: 2007Q3

REPORT INFORMATION
  Report Type: 
  Country: None (occurrence: None)
  Receive Date: 20070820
  Receipt Date: 20070807
  Transmission Date: 20080115
  Serious: Yes (Death, Hospitalization)
  Sender: FDA-Public Use
  Company Number: US-AVENTIS-200712722US

PATIENT
  Sex: Male

DRUGS (6)
  1. KETEK [Suspect]
     Route: 048
     Dates: start: 20050221, end: 20070225
  2. KETEK [Suspect]
     Route: 048
     Dates: start: 20050221, end: 20070225
  3. ALBUTEROL [Concomitant]
     Dosage: DOSE: UNK
  4. HC TUSSIVE [Concomitant]
     Dosage: DOSE: UNK
  5. HC TUSSIVE [Concomitant]
     Dosage: DOSE: UNK
  6. TOPROL-XL [Concomitant]
     Indication: HYPERTENSION

REACTIONS (20)
  - ABDOMINAL DISTENSION [None]
  - ABDOMINAL PAIN [None]
  - ANOREXIA [None]
  - ASCITES [None]
  - ASTHENIA [None]
  - BLOOD URINE PRESENT [None]
  - FATIGUE [None]
  - HEPATIC ENZYME INCREASED [None]
  - HEPATIC FAILURE [None]
  - HEPATITIS [None]
  - HEPATOMEGALY [None]
  - HYPERHIDROSIS [None]
  - JAUNDICE [None]
  - NAUSEA [None]
  - PHOTOSENSITIVITY REACTION [None]
  - PYREXIA [None]
  - SPLENOMEGALY [None]
  - SWELLING [None]
  - VISION BLURRED [None]
  - VOMITING [None]
